FAERS Safety Report 5124023-2 (Version None)
Quarter: 2006Q4

REPORT INFORMATION
  Report Type: 
  Country: None (occurrence: None)
  Receive Date: 20061010
  Receipt Date: 20060915
  Transmission Date: 20070319
  Serious: Yes (Hospitalization)
  Sender: FDA-Public Use
  Company Number: US-GILEAD-2006-0010240

PATIENT
  Age: 50 Year
  Sex: Male

DRUGS (7)
  1. TRUVADA [Suspect]
     Indication: ACQUIRED IMMUNODEFICIENCY SYNDROME
     Route: 048
     Dates: start: 20050101, end: 20060831
  2. PLETAL [Concomitant]
     Dates: start: 20060401
  3. TRILEPTAL [Concomitant]
  4. KALETRA [Concomitant]
     Indication: ACQUIRED IMMUNODEFICIENCY SYNDROME
     Dates: start: 20050101
  5. PENTAMIDINE ISETHIONATE [Concomitant]
     Route: 055
  6. PAMELOR [Concomitant]
  7. NEURONTIN [Concomitant]

REACTIONS (3)
  - ACIDOSIS [None]
  - FANCONI SYNDROME ACQUIRED [None]
  - RESPIRATORY FAILURE [None]
